FAERS Safety Report 14880703 (Version 1)
Quarter: 2018Q2

REPORT INFORMATION
  Report Type: Spontaneous
  Country: FR (occurrence: FR)
  Receive Date: 20180511
  Receipt Date: 20180511
  Transmission Date: 20180711
  Serious: Yes (Other)
  Sender: FDA-Public Use
  Company Number: FR-MERCK KGAA-2047611

PATIENT
  Age: 47 Year
  Sex: Female

DRUGS (1)
  1. NOVOTHYROX [Suspect]
     Active Substance: LEVOTHYROXINE SODIUM
     Indication: THYROIDECTOMY
     Dates: start: 201706

REACTIONS (51)
  - Chest pain [None]
  - Emotional distress [None]
  - Ear discomfort [None]
  - Myalgia [Recovered/Resolved]
  - Dyspnoea [Recovering/Resolving]
  - Drug intolerance [None]
  - Asthenia [Recovering/Resolving]
  - Impaired work ability [None]
  - Somatic symptom disorder [None]
  - Dry skin [None]
  - Self esteem decreased [Recovered/Resolved]
  - Tendon pain [Recovered/Resolved]
  - Hypoglycaemia [Not Recovered/Not Resolved]
  - Fatigue [Not Recovered/Not Resolved]
  - Feeling abnormal [None]
  - Depressed mood [Recovered/Resolved]
  - Discomfort [None]
  - General physical health deterioration [Recovering/Resolving]
  - Decreased activity [None]
  - Arthralgia [None]
  - Feeling of body temperature change [None]
  - Anger [None]
  - Rotator cuff syndrome [None]
  - Mucosal dryness [None]
  - Loss of personal independence in daily activities [None]
  - Insomnia [Not Recovered/Not Resolved]
  - Tendonitis [Not Recovered/Not Resolved]
  - Cardiac discomfort [Not Recovered/Not Resolved]
  - Sense of oppression [Not Recovered/Not Resolved]
  - Pain in extremity [None]
  - Memory impairment [Not Recovered/Not Resolved]
  - Irritability [None]
  - Impaired driving ability [None]
  - Haematoma [None]
  - Feeling cold [Not Recovered/Not Resolved]
  - Restlessness [None]
  - Visual impairment [None]
  - Mental fatigue [None]
  - Loss of libido [None]
  - Anxiety [None]
  - Extrasystoles [None]
  - Migraine [Recovered/Resolved]
  - Asthenopia [Recovered/Resolved]
  - Disturbance in attention [Not Recovered/Not Resolved]
  - Musculoskeletal pain [None]
  - Pollakiuria [None]
  - Emotional disorder [None]
  - Angina pectoris [None]
  - Pain [Recovering/Resolving]
  - Hypokinesia [None]
  - Somnolence [None]

NARRATIVE: CASE EVENT DATE: 2017
